FAERS Safety Report 17978635 (Version 22)
Quarter: 2022Q1

REPORT INFORMATION
  Report Type: Report from Study
  Country: DE (occurrence: DE)
  Receive Date: 20200703
  Receipt Date: 20220318
  Transmission Date: 20220423
  Serious: Yes (Death, Hospitalization, Other)
  Sender: FDA-Public Use
  Company Number: NVSC2020DE183685

PATIENT
  Sex: Female
  Weight: 60.5 kg

DRUGS (12)
  1. KISQALI [Suspect]
     Active Substance: RIBOCICLIB
     Indication: Breast cancer metastatic
     Dosage: 600 MG, QD (TABLET) (START DATE 11 MAY 2020) (SCHEMA 21 DAYS INTAKE, 7 DAYS PAUSE)
     Route: 048
     Dates: start: 20200511, end: 20200707
  2. FULVESTRANT [Suspect]
     Active Substance: FULVESTRANT
     Indication: Breast cancer metastatic
     Dosage: 500 MG, Q4W (DAILY DOSE)
     Route: 030
     Dates: start: 20200508, end: 20200701
  3. PACLITAXEL [Suspect]
     Active Substance: PACLITAXEL
     Indication: Breast cancer metastatic
     Dosage: 56 MG/M2, Q4W (DAILY DOSE) (START DATE 22 JUL 2020) (OTHER, DAY 1+8+15 Q4W)
     Route: 042
     Dates: start: 20200721, end: 20201222
  4. AFINITOR [Suspect]
     Active Substance: EVEROLIMUS
     Indication: Breast cancer metastatic
     Dosage: 5 MG, QD
     Route: 048
     Dates: start: 20220103, end: 20220207
  5. NALOXONE HYDROCHLORIDE\OXYCODONE HYDROCHLORIDE [Concomitant]
     Active Substance: NALOXONE HYDROCHLORIDE\OXYCODONE HYDROCHLORIDE
     Indication: Product used for unknown indication
     Dosage: UNK, BID10/5 MG (ONCE IN THE MORNING, ONCE IN THE EVENING)
     Route: 065
     Dates: start: 202004
  6. XGEVA [Concomitant]
     Active Substance: DENOSUMAB
     Indication: Product used for unknown indication
     Dosage: 120 MG, Q4W
     Route: 058
     Dates: start: 202004
  7. PANTOPRAZOLE [Concomitant]
     Active Substance: PANTOPRAZOLE
     Indication: Product used for unknown indication
     Dosage: 40 MG (IN THE MORNING)
     Route: 048
     Dates: start: 202004
  8. METAMIZOLE [Concomitant]
     Active Substance: METAMIZOLE
     Indication: Product used for unknown indication
     Dosage: 500 MG DROPS (AS NEEDED, UP TO 4X40)
     Route: 048
     Dates: start: 202004
  9. DEXAMETHASONE [Concomitant]
     Active Substance: DEXAMETHASONE
     Indication: Product used for unknown indication
     Dosage: 4 MG, QD (IN THE MORNING)
     Route: 048
     Dates: start: 202004
  10. ONDANSETRON [Concomitant]
     Active Substance: ONDANSETRON
     Indication: Product used for unknown indication
     Dosage: 8 MG, PRN (1 X 8 MG)
     Route: 048
     Dates: start: 202004
  11. LAXANS [Concomitant]
     Indication: Product used for unknown indication
     Dosage: 15 MG, PRN (1X15)
     Route: 065
     Dates: start: 202004
  12. OXYCODONE [Concomitant]
     Active Substance: OXYCODONE
     Indication: Product used for unknown indication
     Dosage: 5 MG (1-2X5 MG) AS NEDDED
     Route: 048
     Dates: start: 202004

REACTIONS (33)
  - General physical health deterioration [Fatal]
  - Ascites [Fatal]
  - Breast cancer metastatic [Fatal]
  - Malignant neoplasm progression [Fatal]
  - Hepatic enzyme increased [Recovered/Resolved]
  - Alanine aminotransferase increased [Recovering/Resolving]
  - Dyspnoea [Recovered/Resolved]
  - Pyrexia [Recovered/Resolved]
  - Pyrexia [Recovering/Resolving]
  - General physical health deterioration [Recovering/Resolving]
  - Urinary retention [Recovering/Resolving]
  - Urinary retention [Recovered/Resolved with Sequelae]
  - Chest discomfort [Recovered/Resolved]
  - Eye swelling [Recovered/Resolved]
  - Chills [Recovered/Resolved]
  - Eye pruritus [Recovered/Resolved]
  - Nausea [Recovered/Resolved]
  - Dyspnoea [Recovered/Resolved]
  - Polyneuropathy [Not Recovered/Not Resolved]
  - Vomiting [Recovered/Resolved]
  - Metastases to peritoneum [Not Recovered/Not Resolved]
  - Anaemia [Not Recovered/Not Resolved]
  - Fatigue [Recovered/Resolved]
  - Dysphonia [Recovering/Resolving]
  - Sleep disorder [Not Recovered/Not Resolved]
  - Spinal pain [Not Recovered/Not Resolved]
  - Arthralgia [Not Recovered/Not Resolved]
  - Cystitis [Recovered/Resolved]
  - Cystitis [Recovered/Resolved]
  - Calcium deficiency [Not Recovered/Not Resolved]
  - Nausea [Not Recovered/Not Resolved]
  - Vitamin D deficiency [Recovered/Resolved]
  - Dry eye [Not Recovered/Not Resolved]

NARRATIVE: CASE EVENT DATE: 20200518
